FAERS Safety Report 18702303 (Version 2)
Quarter: 2021Q1

REPORT INFORMATION
  Report Type: Spontaneous
  Country: US (occurrence: US)
  Receive Date: 20210105
  Receipt Date: 20210310
  Transmission Date: 20210419
  Serious: No
  Sender: FDA-Public Use
  Company Number: US-PFIZER INC-2020333923

PATIENT
  Age: 40 Year
  Sex: Male

DRUGS (6)
  1. XELJANZ [Suspect]
     Active Substance: TOFACITINIB CITRATE
     Indication: MUSCLE SPASMS
     Dosage: 5 MG, 2X/DAY
     Dates: start: 2020, end: 2020
  2. PREDNISONE. [Concomitant]
     Active Substance: PREDNISONE
     Dosage: 5 MG (EVERY OTHER DAY)
  3. XELJANZ [Suspect]
     Active Substance: TOFACITINIB CITRATE
     Indication: COLITIS ULCERATIVE
     Dosage: 10 MG, 2X/DAY
     Route: 048
     Dates: start: 20200821, end: 2020
  4. PREDNISONE. [Concomitant]
     Active Substance: PREDNISONE
     Dosage: 30 MG, DAILY
  5. XELJANZ [Suspect]
     Active Substance: TOFACITINIB CITRATE
     Indication: FUNCTIONAL GASTROINTESTINAL DISORDER
     Dosage: 10 MG, 2X/DAY
     Route: 048
     Dates: start: 202012
  6. PREDNISONE. [Concomitant]
     Active Substance: PREDNISONE
     Dosage: 10 MG

REACTIONS (7)
  - Product dose omission in error [Unknown]
  - Frequent bowel movements [Recovering/Resolving]
  - Stress [Unknown]
  - Sleep disorder [Unknown]
  - Decreased appetite [Recovering/Resolving]
  - Condition aggravated [Unknown]
  - Bacterial disease carrier [Unknown]

NARRATIVE: CASE EVENT DATE: 202012
